FAERS Safety Report 21868730 (Version 1)
Quarter: 2023Q1

REPORT INFORMATION
  Report Type: Spontaneous
  Country: CN (occurrence: CN)
  Receive Date: 20230117
  Receipt Date: 20230117
  Transmission Date: 20230418
  Serious: Yes (Other)
  Sender: FDA-Public Use
  Company Number: None

PATIENT
  Age: 70 Year
  Sex: Female
  Weight: 50 kg

DRUGS (2)
  1. MANNITOL [Suspect]
     Active Substance: MANNITOL
     Indication: Diuretic therapy
     Dosage: 125 ML, TWICE DAILY, DOSAGE FORM: INJECTION
     Route: 041
     Dates: start: 20221206, end: 20221224
  2. MANNITOL [Suspect]
     Active Substance: MANNITOL
     Indication: Neoplasm

REACTIONS (1)
  - Blood sodium increased [Recovering/Resolving]

NARRATIVE: CASE EVENT DATE: 20221224
